FAERS Safety Report 21203789 (Version 1)
Quarter: 2022Q3

REPORT INFORMATION
  Report Type: Spontaneous
  Country: JP (occurrence: JP)
  Receive Date: 20220811
  Receipt Date: 20220811
  Transmission Date: 20221026
  Serious: Yes (Other)
  Sender: FDA-Public Use
  Company Number: JP-NOVARTISPH-NVSJ2022JP095590

PATIENT
  Sex: Female

DRUGS (2)
  1. VALSARTAN [Suspect]
     Active Substance: VALSARTAN
     Indication: Product used for unknown indication
     Dosage: UNK
     Route: 048
     Dates: start: 201812
  2. HYDROCHLOROTHIAZIDE\VALSARTAN [Suspect]
     Active Substance: HYDROCHLOROTHIAZIDE\VALSARTAN
     Indication: Product used for unknown indication
     Dosage: 1 DF: VALSARTAN80 MG,HYDROCHLOROTHIAZIDE6.25MG
     Route: 048
     Dates: start: 201906

REACTIONS (1)
  - Neoplasm malignant [Unknown]

NARRATIVE: CASE EVENT DATE: 20190101
